FAERS Safety Report 7355466-4 (Version None)
Quarter: 2011Q1

REPORT INFORMATION
  Report Type: 
  Country: None (occurrence: None)
  Receive Date: 20110316
  Receipt Date: 20110308
  Transmission Date: 20110831
  Serious: Yes (Death)
  Sender: FDA-Public Use
  Company Number: US-ELI_LILLY_AND_COMPANY-US201101002514

PATIENT
  Sex: Female
  Weight: 95.238 kg

DRUGS (13)
  1. OXYCODONE [Concomitant]
  2. PERCOCET [Concomitant]
  3. CELEXA [Concomitant]
  4. LOVENOX [Concomitant]
  5. COLACE [Concomitant]
  6. PHENERGAN [Concomitant]
  7. LOMOTIL [Concomitant]
  8. COMPAZINE [Concomitant]
  9. ZOFRAN [Concomitant]
  10. LANTUS [Concomitant]
  11. GLUCOPHAGE [Concomitant]
  12. ATIVAN [Concomitant]
  13. GEMZAR [Suspect]
     Indication: BLADDER CANCER
     Dosage: 1000 MG/M2, UNK
     Route: 042
     Dates: start: 20100114, end: 20100114

REACTIONS (2)
  - SEPSIS [None]
  - NEOPLASM PROGRESSION [None]
